FAERS Safety Report 9639712 (Version 1)
Quarter: 2013Q4

REPORT INFORMATION
  Report Type: Spontaneous
  Country: US (occurrence: None)
  Receive Date: 20131021
  Receipt Date: 20131021
  Transmission Date: 20140711
  Serious: No
  Sender: FDA-Public Use
  Company Number: None

PATIENT
  Age: 36 Year
  Sex: Female
  Weight: 74.39 kg

DRUGS (9)
  1. LEVAQUIN [Suspect]
     Indication: CYSTITIS
     Dates: start: 20130821, end: 20130821
  2. TOPAMAX [Concomitant]
  3. IMITREX [Concomitant]
  4. LORATADINE [Concomitant]
  5. B12 [Concomitant]
  6. GERITOL COMPLETE [Concomitant]
  7. ZINC [Concomitant]
  8. OMEGA 3 FISH OIL [Concomitant]
  9. HYDRODONE/APAP [Concomitant]

REACTIONS (16)
  - Nausea [None]
  - Paraesthesia [None]
  - Hypoaesthesia [None]
  - Frequent bowel movements [None]
  - Pain in extremity [None]
  - Decreased appetite [None]
  - Hyperaesthesia [None]
  - Tenderness [None]
  - Pain in extremity [None]
  - Sexual dysfunction [None]
  - Muscle spasms [None]
  - Sleep disorder [None]
  - Impaired driving ability [None]
  - Dysstasia [None]
  - Pain in extremity [None]
  - Temperature intolerance [None]
